FAERS Safety Report 16899904 (Version 2)
Quarter: 2019Q4

REPORT INFORMATION
  Report Type: Spontaneous
  Country: AU (occurrence: AU)
  Receive Date: 20191009
  Receipt Date: 20191101
  Transmission Date: 20200122
  Serious: Yes (Other)
  Sender: FDA-Public Use
  Company Number: AU-JNJFOC-20190937525

PATIENT
  Age: 27 Year
  Sex: Female

DRUGS (4)
  1. MESALAZINE [Suspect]
     Active Substance: MESALAMINE
     Indication: COLITIS ULCERATIVE
     Route: 048
  2. ADALIMUMAB [Suspect]
     Active Substance: ADALIMUMAB
     Indication: COLITIS ULCERATIVE
     Route: 065
  3. INFLIXIMAB, RECOMBINANT [Suspect]
     Active Substance: INFLIXIMAB
     Indication: COLITIS ULCERATIVE
     Route: 042
  4. METHOTREXATE. [Suspect]
     Active Substance: METHOTREXATE
     Indication: COLITIS ULCERATIVE
     Route: 048

REACTIONS (9)
  - Pyrexia [Unknown]
  - Therapy non-responder [Unknown]
  - Pleural effusion [Unknown]
  - Leukocytosis [Unknown]
  - Product use in unapproved indication [Unknown]
  - Eosinophilic pneumonia chronic [Recovering/Resolving]
  - Eosinophil count increased [Unknown]
  - Dyspnoea [Unknown]
  - Cough [Unknown]
